FAERS Safety Report 4492123-6 (Version None)
Quarter: 2004Q4

REPORT INFORMATION
  Report Type: 
  Country: None (occurrence: None)
  Receive Date: 20041101
  Receipt Date: 20041022
  Transmission Date: 20050328
  Serious: Yes (Other)
  Sender: FDA-Public Use
  Company Number: 2004240727US

PATIENT
  Sex: Female

DRUGS (1)
  1. INSPRA [Suspect]
     Dosage: 50 MG, QD, ORAL
     Route: 048

REACTIONS (3)
  - CARDIAC FLUTTER [None]
  - COUGH [None]
  - POLLAKIURIA [None]
